FAERS Safety Report 6198128-1 (Version None)
Quarter: 2009Q2

REPORT INFORMATION
  Report Type: 
  Country: None (occurrence: None)
  Receive Date: 20090521
  Receipt Date: 20090511
  Transmission Date: 20091009
  Serious: Yes (Other)
  Sender: FDA-Public Use
  Company Number: CA-PFIZER INC-2009173798

PATIENT
  Age: 52 Year

DRUGS (2)
  1. CHAMPIX [Suspect]
     Indication: SMOKING CESSATION THERAPY
     Dosage: UNK
     Dates: start: 20090206, end: 20090209
  2. CHAMPIX [Suspect]
     Dosage: 1 MG, UNK
     Dates: start: 20090210, end: 20090211

REACTIONS (15)
  - AGITATION [None]
  - ANGER [None]
  - ANXIETY [None]
  - CRYING [None]
  - DEPRESSION [None]
  - DISTURBANCE IN ATTENTION [None]
  - HALLUCINATION, AUDITORY [None]
  - INSOMNIA [None]
  - NAUSEA [None]
  - NIGHTMARE [None]
  - PARANOIA [None]
  - PSYCHOTIC DISORDER [None]
  - SOMNOLENCE [None]
  - SUICIDAL IDEATION [None]
  - VOMITING [None]
